FAERS Safety Report 11103283 (Version 1)
Quarter: 2015Q2

REPORT INFORMATION
  Report Type: Spontaneous
  Country: FR (occurrence: None)
  Receive Date: 20150507
  Receipt Date: 20150507
  Transmission Date: 20150821
  Serious: Yes (Hospitalization)
  Sender: FDA-Public Use
  Company Number: 2015-000886

PATIENT
  Age: 72 Year
  Sex: Male

DRUGS (8)
  1. CACIT (CALCIUM CARBONATE) EFFERVESCENT TABLET, UNKMG [Suspect]
     Active Substance: CALCIUM CARBONATE
     Route: 048
  2. LIPANTHYL [Suspect]
     Active Substance: FENOFIBRATE
     Dosage: 200 MICRONIZED CAPSULE, 1 GBQ, ?
     Route: 048
  3. URBANYL [Suspect]
     Active Substance: CLOBAZAM
     Route: 048
  4. TEGRETOL [Suspect]
     Active Substance: CARBAMAZEPINE
     Dosage: 400 MG, 1.5 TABLETS
     Route: 048
  5. SPASFON /00765801/ (PHLOROGLUCINOL TRIMETHYLPHLOROGLUCINOL) [Suspect]
     Active Substance: PHLOROGLUCINOL\1,3,5-TRIMETHOXYBENZENE
     Route: 048
  6. LERCAN [Suspect]
     Active Substance: LERCANIDIPINE
     Dosage: 1 TABLET
     Route: 048
  7. SPIRIVA [Suspect]
     Active Substance: TIOTROPIUM BROMIDE MONOHYDRATE
     Dosage: RESPIRATORY
  8. ACTONEL [Suspect]
     Active Substance: RISEDRONATE SODIUM
     Route: 048

REACTIONS (1)
  - Hyponatraemia [None]

NARRATIVE: CASE EVENT DATE: 20140507
